FAERS Safety Report 4658141-X (Version None)
Quarter: 2005Q2

REPORT INFORMATION
  Report Type: 
  Country: None (occurrence: None)
  Receive Date: 20050509
  Receipt Date: 20050502
  Transmission Date: 20051028
  Serious: Yes (Other)
  Sender: FDA-Public Use
  Company Number: 2005069178

PATIENT
  Age: 23 Year
  Sex: Female
  Weight: 47.1741 kg

DRUGS (3)
  1. LIPITOR [Suspect]
     Indication: ILL-DEFINED DISORDER
     Dosage: 10 MG (10 MG, 1 IN 1 D), ORAL
     Route: 048
  2. LIPITOR [Suspect]
     Indication: MYOCARDIAL INFARCTION
     Dosage: 10 MG (10 MG, 1 IN 1 D), ORAL
     Route: 048
  3. EZETIMIBE (EZETIMIBE) [Concomitant]

REACTIONS (3)
  - MYOCARDIAL INFARCTION [None]
  - PAIN IN EXTREMITY [None]
  - PERIPHERAL ISCHAEMIA [None]
